FAERS Safety Report 15833272 (Version 2)
Quarter: 2019Q1

REPORT INFORMATION
  Report Type: Spontaneous
  Country: IT (occurrence: IT)
  Receive Date: 20190116
  Receipt Date: 20190220
  Transmission Date: 20190417
  Serious: Yes (Death, Hospitalization, Other)
  Sender: FDA-Public Use
  Company Number: IT-PFIZER INC-2019020774

PATIENT
  Age: 63 Year
  Sex: Female

DRUGS (1)
  1. GEMCITABINE HYDROCHLORIDE. [Suspect]
     Active Substance: GEMCITABINE HYDROCHLORIDE
     Indication: OVARIAN NEOPLASM
     Dosage: UNK
     Route: 041

REACTIONS (5)
  - Neutropenia [Fatal]
  - Pneumonia pneumococcal [Fatal]
  - Septic shock [Fatal]
  - Sepsis [Fatal]
  - Acute kidney injury [Unknown]
